FAERS Safety Report 10986110 (Version 1)
Quarter: 2015Q1

REPORT INFORMATION
  Report Type: Spontaneous
  Country: US (occurrence: None)
  Receive Date: 20150313
  Receipt Date: 20150313
  Transmission Date: 20150721
  Serious: Yes (Life-Threatening, Disabling)
  Sender: FDA-Public Use
  Company Number: 1483006

PATIENT
  Age: 45 Year
  Sex: Female
  Weight: 48.9 kg

DRUGS (1)
  1. XOLAIR [Suspect]
     Active Substance: OMALIZUMAB
     Indication: ASTHMA
     Dosage: 300 MG, 1 IN 2 WK, SUBCUTANEOUS
     Route: 058
     Dates: start: 20130821

REACTIONS (1)
  - Lung adenocarcinoma [None]
